FAERS Safety Report 14532997 (Version 8)
Quarter: 2018Q2

REPORT INFORMATION
  Report Type: Report from Study
  Country: CA (occurrence: CA)
  Receive Date: 20180215
  Receipt Date: 20180516
  Transmission Date: 20180711
  Serious: Yes (Other)
  Sender: FDA-Public Use
  Company Number: CA-ROCHE-2037517

PATIENT
  Age: 7 Year
  Sex: Male

DRUGS (6)
  1. ACTEMRA [Suspect]
     Active Substance: TOCILIZUMAB
     Route: 042
     Dates: start: 20171124
  2. PREVACID [Concomitant]
     Active Substance: LANSOPRAZOLE
  3. ARAVA [Concomitant]
     Active Substance: LEFLUNOMIDE
  4. CORTISONE [Concomitant]
     Active Substance: CORTISONE\HYDROCORTISONE
     Dosage: CORTISONE INFILTRATION
     Route: 065
  5. NAPROSYN [Concomitant]
     Active Substance: NAPROXEN
  6. ACTEMRA [Suspect]
     Active Substance: TOCILIZUMAB
     Indication: JUVENILE IDIOPATHIC ARTHRITIS
     Route: 042
     Dates: start: 20170915

REACTIONS (15)
  - Rhinorrhoea [Not Recovered/Not Resolved]
  - Wound [Not Recovered/Not Resolved]
  - Oropharyngeal pain [Not Recovered/Not Resolved]
  - Gastroenteritis [Recovered/Resolved]
  - Abdominal pain [Not Recovered/Not Resolved]
  - Pyrexia [Unknown]
  - Abdominal pain upper [Not Recovered/Not Resolved]
  - Haematochezia [Not Recovered/Not Resolved]
  - Tooth loss [Not Recovered/Not Resolved]
  - Nasal congestion [Not Recovered/Not Resolved]
  - Cough [Recovering/Resolving]
  - Decreased appetite [Unknown]
  - Neutrophil count decreased [Unknown]
  - Pallor [Not Recovered/Not Resolved]
  - Infection [Unknown]

NARRATIVE: CASE EVENT DATE: 20171125
